FAERS Safety Report 6192544-X (Version None)
Quarter: 2009Q2

REPORT INFORMATION
  Report Type: 
  Country: None (occurrence: None)
  Receive Date: 20090518
  Receipt Date: 20090506
  Transmission Date: 20091009
  Serious: Yes (Hospitalization)
  Sender: FDA-Public Use
  Company Number: BE-AMGEN-US346360

PATIENT
  Age: 54 Year
  Sex: Female

DRUGS (5)
  1. ENBREL [Suspect]
     Indication: RHEUMATOID ARTHRITIS
     Route: 058
     Dates: start: 20070905
  2. DAFALGAN [Concomitant]
  3. CALCIUM CARBONATE [Concomitant]
  4. CIPROFLOXACIN [Concomitant]
     Dates: start: 20081121
  5. CEFUROXIME [Concomitant]
     Dates: start: 20081121

REACTIONS (1)
  - NEPHROLITHIASIS [None]
